FAERS Safety Report 18848314 (Version 1)
Quarter: 2021Q1

REPORT INFORMATION
  Report Type: Spontaneous
  Country: GB (occurrence: GB)
  Receive Date: 20210204
  Receipt Date: 20210204
  Transmission Date: 20210419
  Serious: Yes (Hospitalization)
  Sender: FDA-Public Use
  Company Number: GB-NOVOPROD-784379

PATIENT
  Age: 8 Year
  Sex: Male

DRUGS (2)
  1. NORDITROPIN [Suspect]
     Active Substance: SOMATROPIN
     Indication: GONADAL DYSGENESIS
     Dosage: AS DIRECTED
     Route: 065
  2. NORDITROPIN [Suspect]
     Active Substance: SOMATROPIN
     Indication: MOSAICISM

REACTIONS (2)
  - Hospitalisation [Unknown]
  - Product use in unapproved indication [Unknown]
